FAERS Safety Report 9286535 (Version 1)
Quarter: 2013Q2

REPORT INFORMATION
  Report Type: Spontaneous
  Country: ES (occurrence: ES)
  Receive Date: 20130513
  Receipt Date: 20130513
  Transmission Date: 20140414
  Serious: Yes (Other)
  Sender: FDA-Public Use
  Company Number: ES-ELI_LILLY_AND_COMPANY-ES201305003155

PATIENT
  Age: 57 Year
  Sex: Male
  Weight: 55 kg

DRUGS (5)
  1. ALIMTA [Suspect]
     Indication: LUNG NEOPLASM MALIGNANT
     Dosage: UNK, 3 WEEKS
     Route: 042
     Dates: start: 20130506
  2. CISPLATINO [Concomitant]
     Indication: LUNG NEOPLASM MALIGNANT
     Dosage: UNK/ 3 WEEKS
     Dates: start: 20130506
  3. ACFOL [Concomitant]
     Indication: PREMEDICATION
     Dosage: 5 MG, QD
     Route: 048
     Dates: start: 20130430
  4. PARACETAMOL [Concomitant]
     Indication: PAIN
     Dosage: 1 G, EVERY 8 HRS, IF NEEDED
     Route: 048
  5. PRIMPERAN [Concomitant]
     Indication: NAUSEA
     Dosage: 10 MG, EVERY 8 HRS IF NEEDED
     Route: 048
     Dates: start: 20130506

REACTIONS (2)
  - Haemoptysis [Not Recovered/Not Resolved]
  - Nausea [Not Recovered/Not Resolved]
